FAERS Safety Report 21077261 (Version 1)
Quarter: 2022Q3

REPORT INFORMATION
  Report Type: Spontaneous
  Country: FR (occurrence: FR)
  Receive Date: 20220713
  Receipt Date: 20220713
  Transmission Date: 20221027
  Serious: Yes (Other)
  Sender: FDA-Public Use
  Company Number: None

PATIENT
  Age: 54 Year
  Sex: Female
  Weight: 55 kg

DRUGS (5)
  1. COSENTYX [Suspect]
     Active Substance: SECUKINUMAB
     Indication: Psoriasis
     Dosage: 150 MG, QW
     Route: 058
     Dates: start: 20201011, end: 20210512
  2. METHOTREXATE SODIUM [Concomitant]
     Active Substance: METHOTREXATE SODIUM
     Indication: Psoriasis
     Dosage: UNK
     Route: 058
  3. FOLIC ACID [Concomitant]
     Active Substance: FOLIC ACID
     Indication: Psoriasis
     Dosage: UNK
     Route: 048
  4. PAROXETINE HYDROCHLORIDE [Concomitant]
     Active Substance: PAROXETINE HYDROCHLORIDE
     Indication: Product used for unknown indication
     Dosage: UNK
     Route: 048
  5. VERAPAMIL HYDROCHLORIDE [Concomitant]
     Active Substance: VERAPAMIL HYDROCHLORIDE
     Indication: Product used for unknown indication
     Dosage: UNK
     Route: 048

REACTIONS (2)
  - Gastrointestinal pain [Recovered/Resolved]
  - Drug ineffective [Recovered/Resolved]

NARRATIVE: CASE EVENT DATE: 20201201
